FAERS Safety Report 4898893-7 (Version None)
Quarter: 2006Q1

REPORT INFORMATION
  Report Type: 
  Country: None (occurrence: None)
  Receive Date: 20060202
  Receipt Date: 20060131
  Transmission Date: 20060701
  Serious: Yes (Other)
  Sender: FDA-Public Use
  Company Number: US-GLAXOSMITHKLINE-A0591641A

PATIENT
  Age: 67 Year
  Sex: Male

DRUGS (21)
  1. GOODY'S EXTRA STRENGTH HEADACHE POWDER [Suspect]
     Indication: HEADACHE
     Route: 048
  2. FORADIL [Concomitant]
  3. SPIRIVA [Concomitant]
  4. POTASSIUM [Concomitant]
  5. FUROSAMIDE [Concomitant]
  6. NORVASC [Concomitant]
  7. ALLOPURINOL [Concomitant]
     Dates: start: 20051201
  8. COLCHICINE [Concomitant]
     Dates: end: 20051201
  9. ADVAIR DISKUS 100/50 [Concomitant]
     Dates: end: 20051201
  10. LORAZEPAM [Concomitant]
  11. ALBUTEROL SULFATE AUTOHALER [Concomitant]
  12. IPRATROPIUM BROMIDE [Concomitant]
  13. BUDESONIDE [Concomitant]
  14. OXYGEN [Concomitant]
  15. ALLEGRA [Concomitant]
     Dates: end: 20051201
  16. SINGULAIR [Concomitant]
     Dates: end: 20060101
  17. ALEVE [Concomitant]
  18. ANTIBIOTIC [Concomitant]
  19. KEFLEX [Concomitant]
  20. DOXYCILLIN [Concomitant]
     Dates: start: 20051212, end: 20051223
  21. BACTRIM [Concomitant]

REACTIONS (4)
  - BRONCHITIS [None]
  - HEPATIC ENZYME INCREASED [None]
  - RASH GENERALISED [None]
  - WHITE BLOOD CELL COUNT INCREASED [None]
